FAERS Safety Report 22054240 (Version 2)
Quarter: 2023Q2

REPORT INFORMATION
  Report Type: Spontaneous
  Country: US (occurrence: US)
  Receive Date: 20230302
  Receipt Date: 20230407
  Transmission Date: 20230721
  Serious: No
  Sender: FDA-Public Use
  Company Number: US-PFIZER INC-PV202300017217

PATIENT
  Age: 60 Year
  Sex: Female

DRUGS (1)
  1. XELJANZ XR [Suspect]
     Active Substance: TOFACITINIB CITRATE
     Indication: Rheumatoid arthritis
     Dosage: 11 MG, DAILY
     Route: 048
     Dates: start: 202210

REACTIONS (8)
  - COVID-19 [Unknown]
  - Feeling cold [Recovered/Resolved]
  - Headache [Not Recovered/Not Resolved]
  - Myofascial pain syndrome [Unknown]
  - Myalgia [Unknown]
  - Product dose omission issue [Unknown]
  - Skin discolouration [Recovered/Resolved]
  - Hyperaesthesia [Recovered/Resolved]

NARRATIVE: CASE EVENT DATE: 20230201
